FAERS Safety Report 16205202 (Version 1)
Quarter: 2019Q2

REPORT INFORMATION
  Report Type: Spontaneous
  Country: DE (occurrence: DE)
  Receive Date: 20190416
  Receipt Date: 20190416
  Transmission Date: 20190711
  Serious: Yes (Hospitalization, Other)
  Sender: FDA-Public Use
  Company Number: PHHY2019DE044388

PATIENT
  Sex: Female
  Weight: 68 kg

DRUGS (2)
  1. COSENTYX [Suspect]
     Active Substance: SECUKINUMAB
     Indication: DERMATITIS PSORIASIFORM
  2. COSENTYX [Suspect]
     Active Substance: SECUKINUMAB
     Indication: SKIN LESION
     Dosage: 300 MG, QW
     Route: 058
     Dates: start: 20180604, end: 20180703

REACTIONS (8)
  - Pruritus [Recovered/Resolved with Sequelae]
  - Alopecia [Recovered/Resolved with Sequelae]
  - Condition aggravated [Recovered/Resolved with Sequelae]
  - Erythema [Recovered/Resolved with Sequelae]
  - Skin disorder [Recovered/Resolved with Sequelae]
  - Depression [Recovered/Resolved]
  - Product use in unapproved indication [Unknown]
  - Feeling of despair [Recovered/Resolved]

NARRATIVE: CASE EVENT DATE: 20180701
